FAERS Safety Report 4269330-0 (Version None)
Quarter: 2004Q1

REPORT INFORMATION
  Report Type: 
  Country: None (occurrence: None)
  Receive Date: 20040108
  Receipt Date: 20031128
  Transmission Date: 20041129
  Serious: No
  Sender: FDA-Public Use
  Company Number: A02200303257

PATIENT
  Age: 80 Year
  Sex: Female

DRUGS (6)
  1. PLAVIX [Suspect]
     Indication: STENT PLACEMENT
     Dosage: 75 MG OD ORAL
     Route: 048
     Dates: start: 20031125, end: 20031126
  2. ASPEGIC 1000 [Concomitant]
  3. NITROGLYCERIN [Concomitant]
  4. ZOCOR [Concomitant]
  5. OMEPRAZOLE [Concomitant]
  6. LORAZEPAM [Concomitant]

REACTIONS (5)
  - ANGIONEUROTIC OEDEMA [None]
  - EYELID OEDEMA [None]
  - LARYNGEAL DISCOMFORT [None]
  - PRURITUS [None]
  - PYREXIA [None]
